FAERS Safety Report 24220328 (Version 2)
Quarter: 2024Q3

REPORT INFORMATION
  Report Type: Spontaneous
  Country: US (occurrence: None)
  Receive Date: 20240817
  Receipt Date: 20240917
  Transmission Date: 20241017
  Serious: No
  Sender: ASTRAZENECA
  Company Number: 2024A183972

PATIENT
  Age: 66 Year
  Sex: Male
  Weight: 81.6 kg

DRUGS (1)
  1. BREZTRI [Suspect]
     Active Substance: BUDESONIDE\FORMOTEROL\GLYCOPYRROLATE
     Indication: Chronic obstructive pulmonary disease
     Route: 055
     Dates: start: 20220919

REACTIONS (3)
  - Irritability [Unknown]
  - Dyspnoea [Unknown]
  - Drug dose omission by device [Unknown]
